FAERS Safety Report 5332437-0 (Version None)
Quarter: 2007Q2

REPORT INFORMATION
  Report Type: 
  Country: None (occurrence: None)
  Receive Date: 20070523
  Receipt Date: 20070518
  Transmission Date: 20071010
  Serious: Yes (Other)
  Sender: FDA-Public Use
  Company Number: CA-JNJFOC-20070102573

PATIENT
  Sex: Male
  Weight: 50.8 kg

DRUGS (7)
  1. CONCERTA [Suspect]
     Route: 048
  2. CONCERTA [Suspect]
     Indication: ATTENTION DEFICIT/HYPERACTIVITY DISORDER
     Route: 048
  3. BIAXIN [Interacting]
     Indication: INFECTION
  4. FLONASE [Concomitant]
  5. SALBUTAMOL [Concomitant]
  6. DESLORATADINE [Concomitant]
     Indication: SEASONAL ALLERGY
  7. REACTINE [Concomitant]
     Indication: SEASONAL ALLERGY

REACTIONS (4)
  - CHILLS [None]
  - DRUG INTERACTION [None]
  - HALLUCINATION [None]
  - SLEEP TERROR [None]
